FAERS Safety Report 11990999 (Version 1)
Quarter: 2016Q1

REPORT INFORMATION
  Report Type: Spontaneous
  Country: CN (occurrence: CN)
  Receive Date: 20160202
  Receipt Date: 20160202
  Transmission Date: 20160526
  Serious: Yes (Hospitalization)
  Sender: FDA-Public Use
  Company Number: CN-009507513-1601CHN011196

PATIENT
  Age: 70 Year
  Sex: Female
  Weight: 74 kg

DRUGS (1)
  1. ZOCOR [Suspect]
     Active Substance: SIMVASTATIN
     Indication: LIPIDS ABNORMAL
     Dosage: 10 MG, UNK
     Route: 048
     Dates: start: 20150505, end: 20150519

REACTIONS (1)
  - Blood creatine phosphokinase abnormal [Recovering/Resolving]

NARRATIVE: CASE EVENT DATE: 20150519
